FAERS Safety Report 19834978 (Version 1)
Quarter: 2021Q3

REPORT INFORMATION
  Report Type: Report from Study
  Country: US (occurrence: US)
  Receive Date: 20210915
  Receipt Date: 20210915
  Transmission Date: 20211014
  Serious: No
  Sender: FDA-Public Use
  Company Number: US-KYOWAKIRIN-2021BKK015375

PATIENT

DRUGS (1)
  1. POTELIGEO [Suspect]
     Active Substance: MOGAMULIZUMAB-KPKC
     Indication: CUTANEOUS T-CELL LYMPHOMA
     Dosage: 5 VIALS QW AT INDUCTIONS AND Q2W AT MAINTENANCE
     Route: 065
     Dates: start: 201608

REACTIONS (2)
  - Therapy partial responder [Unknown]
  - Therapy naive [Unknown]

NARRATIVE: CASE EVENT DATE: 201608
